FAERS Safety Report 9990884 (Version 1)
Quarter: 2014Q1

REPORT INFORMATION
  Report Type: Report from Study
  Country: US (occurrence: US)
  Receive Date: 20140310
  Receipt Date: 20140310
  Transmission Date: 20141002
  Serious: No
  Sender: FDA-Public Use
  Company Number: US-ABBVIE-13P-163-1132514-00

PATIENT
  Age: 68 Year
  Sex: Male
  Weight: 104.42 kg

DRUGS (14)
  1. HUMIRA [Suspect]
     Indication: PSORIATIC ARTHROPATHY
     Dates: start: 201305, end: 20130717
  2. HUMIRA [Suspect]
     Indication: PSORIASIS
  3. TRILIPIX [Concomitant]
     Indication: CARDIOVASCULAR DISORDER
  4. REQUIP [Concomitant]
     Indication: RESTLESS LEGS SYNDROME
  5. RANEXA [Concomitant]
     Indication: CARDIAC OPERATION
  6. LEVOTHYROXINE [Concomitant]
     Indication: THYROID DISORDER
  7. CELEXA [Concomitant]
     Indication: DEPRESSION
  8. PLAVIX [Concomitant]
     Indication: CORONARY ARTERIAL STENT INSERTION
  9. JANUMET [Concomitant]
     Indication: DIABETES MELLITUS
  10. CRESTOR [Concomitant]
     Indication: BLOOD CHOLESTEROL INCREASED
  11. IMDUR [Concomitant]
     Indication: CARDIAC DISORDER
  12. DIOVAN [Concomitant]
     Indication: HYPERTENSION
  13. TRAMADOL [Concomitant]
     Indication: PAIN
  14. NITROSTAT [Concomitant]
     Indication: ANGINA PECTORIS

REACTIONS (2)
  - Psoriasis [Not Recovered/Not Resolved]
  - Arthralgia [Not Recovered/Not Resolved]
